FAERS Safety Report 16197581 (Version 3)
Quarter: 2019Q2

REPORT INFORMATION
  Report Type: Spontaneous
  Country: US (occurrence: US)
  Receive Date: 20190415
  Receipt Date: 20190527
  Transmission Date: 20190711
  Serious: Yes (Hospitalization)
  Sender: FDA-Public Use
  Company Number: US-PFIZER INC-2018066924

PATIENT
  Age: 18 Year
  Sex: Female
  Weight: 91.63 kg

DRUGS (4)
  1. GENOTROPIN [Suspect]
     Active Substance: SOMATROPIN
     Indication: BLOOD GLUCOSE DECREASED
     Dosage: 1.6 ML, EVERY NIGHT
     Dates: start: 201509
  2. GENOTROPIN [Suspect]
     Active Substance: SOMATROPIN
     Indication: EPINEPHRINE DECREASED
  3. GENOTROPIN [Suspect]
     Active Substance: SOMATROPIN
     Indication: PRADER-WILLI SYNDROME
  4. GENOTROPIN [Suspect]
     Active Substance: SOMATROPIN
     Indication: DUMPING SYNDROME

REACTIONS (1)
  - Foot fracture [Unknown]
